FAERS Safety Report 7956700-X (Version None)
Quarter: 2011Q4

REPORT INFORMATION
  Report Type: 
  Country: None (occurrence: None)
  Receive Date: 20111205
  Receipt Date: 20111130
  Transmission Date: 20120403
  Serious: Yes (Life-Threatening, Other)
  Sender: FDA-Public Use
  Company Number: MA-PFIZER INC-2011242015

PATIENT
  Age: 50 Year
  Sex: Male

DRUGS (2)
  1. VFEND [Suspect]
     Dosage: 200 MG, SINGLE
     Route: 042
  2. TIENAM [Concomitant]
     Dosage: UNK

REACTIONS (3)
  - SUICIDAL IDEATION [None]
  - HALLUCINATION [None]
  - ABNORMAL BEHAVIOUR [None]
